FAERS Safety Report 24162851 (Version 1)
Quarter: 2024Q3

REPORT INFORMATION
  Report Type: Spontaneous
  Country: US (occurrence: None)
  Receive Date: 20240801
  Receipt Date: 20240801
  Transmission Date: 20241016
  Serious: Yes (Life-Threatening, Hospitalization)
  Sender: Public
  Company Number: None

PATIENT
  Age: 86 Year
  Sex: Male
  Weight: 101.25 kg

DRUGS (4)
  1. JARDIANCE [Suspect]
     Active Substance: EMPAGLIFLOZIN
     Indication: Type 2 diabetes mellitus
     Dates: start: 20240614, end: 20240716
  2. VITAMINS [Concomitant]
     Active Substance: VITAMINS
  3. DIETARY SUPPLEMENT [Concomitant]
     Active Substance: DIETARY SUPPLEMENT
  4. OMEGA 3 [Concomitant]
     Active Substance: CAPSAICIN

REACTIONS (5)
  - Weight decreased [None]
  - Amnesia [None]
  - Cognitive disorder [None]
  - Blood sodium decreased [None]
  - Fatigue [None]

NARRATIVE: CASE EVENT DATE: 20240713
